FAERS Safety Report 7126545-1 (Version None)
Quarter: 2010Q4

REPORT INFORMATION
  Report Type: 
  Country: None (occurrence: None)
  Receive Date: 20101129
  Receipt Date: 20101124
  Transmission Date: 20110411
  Serious: Yes (Other)
  Sender: FDA-Public Use
  Company Number: BR-PFIZER INC-2010118447

PATIENT
  Sex: Female

DRUGS (12)
  1. PIROXICAM [Suspect]
     Indication: FIBROMYALGIA
  2. SERTRALINE HYDROCHLORIDE [Suspect]
  3. VENLAFAXINE HCL [Suspect]
     Dosage: 75 MG, 1X/DAY
  4. VENLAFAXINE HCL [Suspect]
     Dosage: 150 MG, 1X/DAY
  5. IBUPROFEN [Suspect]
     Indication: FIBROMYALGIA
  6. MELOXICAM [Suspect]
     Indication: FIBROMYALGIA
  7. PAROXETINE [Suspect]
  8. FLUOXETINE [Suspect]
  9. PRELONE [Suspect]
     Indication: AUTOIMMUNE DISORDER
     Dosage: 40 MG, UNK
  10. PRELONE [Suspect]
     Dosage: 5 MG, UNK
     Dates: end: 20100801
  11. CYMBALTA [Suspect]
     Indication: DEPRESSION
     Dosage: UNK
     Route: 048
  12. CYMBALTA [Suspect]
     Indication: PAIN

REACTIONS (12)
  - BLOOD PRESSURE INCREASED [None]
  - COLD SWEAT [None]
  - DRUG HYPERSENSITIVITY [None]
  - DRUG INEFFECTIVE [None]
  - HEADACHE [None]
  - MIGRAINE [None]
  - NAUSEA [None]
  - OEDEMA [None]
  - RESPIRATORY DEPRESSION [None]
  - RESPIRATORY FAILURE [None]
  - TACHYCARDIA [None]
  - WEIGHT INCREASED [None]
